FAERS Safety Report 18579484 (Version 2)
Quarter: 2021Q1

REPORT INFORMATION
  Report Type: Spontaneous
  Country: MX (occurrence: MX)
  Receive Date: 20201204
  Receipt Date: 20210329
  Transmission Date: 20210419
  Serious: Yes (Death)
  Sender: FDA-Public Use
  Company Number: MX-BAYER-2020-265904

PATIENT
  Age: 27 Year
  Sex: Male

DRUGS (1)
  1. LAROTRECTINIB [Suspect]
     Active Substance: LAROTRECTINIB
     Indication: GLIOBLASTOMA
     Dosage: 10 ML, BID
     Route: 048

REACTIONS (2)
  - Cerebral haemorrhage [Fatal]
  - COVID-19 [Fatal]

NARRATIVE: CASE EVENT DATE: 20201129
